FAERS Safety Report 8088380 (Version 3)
Quarter: 2013Q1

REPORT INFORMATION
  Report Type: Report from Study
  Country: JP (occurrence: JP)
  Receive Date: 20110812
  Receipt Date: 20130220
  Transmission Date: 20140127
  Serious: Yes (Death, Life-Threatening)
  Sender: FDA-Public Use
  Company Number: JP-EISAI INC-E2020-09576-CLI-JP

PATIENT
  Age: 78 Year
  Sex: Male

DRUGS (4)
  1. ARICEPT [Suspect]
     Indication: DEMENTIA ALZHEIMER^S TYPE
     Route: 048
     Dates: start: 20110212, end: 20110225
  2. ARICEPT [Suspect]
     Route: 048
     Dates: start: 20110226, end: 20110406
  3. DIOVAN [Concomitant]
     Route: 048
     Dates: start: 20100522, end: 20110406
  4. AMLODIN [Concomitant]
     Route: 048
     Dates: start: 20110212, end: 20110406

REACTIONS (4)
  - Dehydration [Fatal]
  - Vitamin B1 deficiency [Fatal]
  - Multi-organ failure [Fatal]
  - Hypothermia [Recovered/Resolved]
